FAERS Safety Report 7368797-9 (Version None)
Quarter: 2011Q1

REPORT INFORMATION
  Report Type: 
  Country: None (occurrence: None)
  Receive Date: 20110304
  Receipt Date: 20101029
  Transmission Date: 20110831
  Serious: Yes (Hospitalization)
  Sender: FDA-Public Use
  Company Number: CLOF-1000577

PATIENT
  Age: 68 Year
  Sex: Female

DRUGS (15)
  1. AMBIEN [Suspect]
     Indication: INSOMNIA
  2. DIOVAN HCT [Concomitant]
  3. MIRTAZAPINE [Concomitant]
  4. LASIX [Concomitant]
  5. REQUIP [Suspect]
     Indication: RESTLESS LEGS SYNDROME
  6. LISINOPRIL [Concomitant]
  7. ARA-C (CYTARABINE) SOLUTION FOR INFUSION [Suspect]
     Indication: ACUTE MYELOID LEUKAEMIA
     Dosage: 1 G/M2, QD
     Dates: start: 20090527
  8. VIDAZA [Concomitant]
  9. CIPRO [Concomitant]
  10. ACYCLOVIR [Concomitant]
  11. MERREM (IMEROPENEM) [Concomitant]
  12. VANCOMYCIN [Concomitant]
  13. NORVASC [Concomitant]
  14. HYDRALAZINE (IHYDRALAZINE) [Concomitant]
  15. CYMBALTA [Concomitant]

REACTIONS (13)
  - TRACHEOMALACIA [None]
  - DIASTOLIC DYSFUNCTION [None]
  - DYSGRAPHIA [None]
  - NEUROTOXICITY [None]
  - CONTUSION [None]
  - CONDITION AGGRAVATED [None]
  - NYSTAGMUS [None]
  - FEBRILE NEUTROPENIA [None]
  - ASTHMA [None]
  - NAUSEA [None]
  - BLOOD GLUCOSE INCREASED [None]
  - BLOOD PRESSURE INADEQUATELY CONTROLLED [None]
  - THROMBOCYTOPENIA [None]
